FAERS Safety Report 11804014 (Version 1)
Quarter: 2015Q4

REPORT INFORMATION
  Report Type: Report from Study
  Country: RU (occurrence: RU)
  Receive Date: 20151204
  Receipt Date: 20151204
  Transmission Date: 20160305
  Serious: Yes (Other)
  Sender: FDA-Public Use
  Company Number: CHPA2015RU014385

PATIENT
  Age: 37 Year
  Sex: Male

DRUGS (2)
  1. THERAFLU ACETAM/PHENIR/PHENEPH [Suspect]
     Active Substance: ACETAMINOPHEN\PHENIRAMINE MALEATE\PHENYLEPHRINE HYDROCHLORIDE
     Indication: UPPER RESPIRATORY TRACT INFECTION
     Dosage: UNK UNK, TID
     Route: 065
     Dates: start: 20150925, end: 20150929
  2. BISEPTOL [Concomitant]
     Active Substance: SULFAMETHOXAZOLE\TRIMETHOPRIM
     Indication: PROPHYLAXIS
     Route: 065

REACTIONS (2)
  - Hepatotoxicity [Unknown]
  - Scleral discolouration [Unknown]

NARRATIVE: CASE EVENT DATE: 20150929
